FAERS Safety Report 9477243 (Version 1)
Quarter: 2013Q3

REPORT INFORMATION
  Report Type: Spontaneous
  Country: IT (occurrence: IT)
  Receive Date: 20130826
  Receipt Date: 20130826
  Transmission Date: 20140515
  Serious: Yes (Hospitalization)
  Sender: FDA-Public Use
  Company Number: IT-MYLANLABS-2013S1018299

PATIENT
  Age: 28 Year
  Sex: Male

DRUGS (2)
  1. LEVOFLOXACIN [Suspect]
     Indication: BRONCHOPNEUMONIA
     Route: 048
  2. PIPERACILLIN W/TAZOBACTAM          /01606301/ [Concomitant]
     Indication: BRONCHOPNEUMONIA
     Route: 042

REACTIONS (1)
  - Kounis syndrome [Recovering/Resolving]
